FAERS Safety Report 8836527 (Version 1)
Quarter: 2012Q4

REPORT INFORMATION
  Report Type: Spontaneous
  Country: US (occurrence: None)
  Receive Date: 20121009
  Receipt Date: 20121009
  Transmission Date: 20130627
  Serious: Yes (Hospitalization, Other)
  Sender: FDA-Public Use
  Company Number: AL/ADR/AMLO/3/S-NL

PATIENT
  Sex: Female

DRUGS (1)
  1. AMLODIPINE [Suspect]
     Route: 048

REACTIONS (1)
  - Blood pressure increased [None]
